FAERS Safety Report 13982705 (Version 1)
Quarter: 2017Q3

REPORT INFORMATION
  Report Type: Spontaneous
  Country: US (occurrence: US)
  Receive Date: 20170918
  Receipt Date: 20170918
  Transmission Date: 20171128
  Serious: Yes (Other)
  Sender: FDA-Public Use
  Company Number: US-SEPTODONT-201704248

PATIENT
  Age: 68 Year
  Sex: Female

DRUGS (2)
  1. SEPTOCAINE AND EPINEPHRINE [Suspect]
     Active Substance: ARTICAINE HYDROCHLORIDE\EPINEPHRINE BITARTRATE
     Indication: LOCAL ANAESTHESIA
     Route: 004
     Dates: start: 20170830, end: 20170830
  2. AMOXICILLIN. [Concomitant]
     Active Substance: AMOXICILLIN

REACTIONS (2)
  - Rash [Unknown]
  - Swelling [Unknown]

NARRATIVE: CASE EVENT DATE: 20170830
